FAERS Safety Report 21475789 (Version 6)
Quarter: 2022Q4

REPORT INFORMATION
  Report Type: Spontaneous
  Country: JP (occurrence: JP)
  Receive Date: 20221019
  Receipt Date: 20221208
  Transmission Date: 20230112
  Serious: Yes (Death)
  Sender: FDA-Public Use
  Company Number: JP-JNJFOC-20221028893

PATIENT
  Age: 9 Decade
  Sex: Male

DRUGS (14)
  1. OPSUMIT [Suspect]
     Active Substance: MACITENTAN
     Indication: Pulmonary arterial hypertension
     Route: 048
     Dates: start: 20170207, end: 20220823
  2. UPTRAVI [Suspect]
     Active Substance: SELEXIPAG
     Indication: Pulmonary arterial hypertension
     Dosage: DOSE UNKNOWN
     Route: 048
     Dates: start: 20170808, end: 20220823
  3. ADCIRCA [Concomitant]
     Active Substance: TADALAFIL
     Indication: Pulmonary arterial hypertension
     Route: 048
     Dates: start: 20170207, end: 20220823
  4. TRICHLORMETHIAZIDE [Concomitant]
     Active Substance: TRICHLORMETHIAZIDE
     Dosage: 0.5 MG
     Dates: end: 20220823
  5. LANSOPRAZOLE [Concomitant]
     Active Substance: LANSOPRAZOLE
     Dates: end: 20220823
  6. LEVOTHYROXINE [Concomitant]
     Active Substance: LEVOTHYROXINE
  7. PIMOBENDAN [Concomitant]
     Active Substance: PIMOBENDAN
  8. TOLVAPTAN [Concomitant]
     Active Substance: TOLVAPTAN
  9. AZOSEMIDE [Concomitant]
     Active Substance: AZOSEMIDE
  10. WARFARIN POTASSIUM [Concomitant]
     Active Substance: WARFARIN POTASSIUM
  11. EPLERENONE [Concomitant]
     Active Substance: EPLERENONE
  12. TORSEMIDE [Concomitant]
     Active Substance: TORSEMIDE
  13. FEBUXOSTAT [Concomitant]
     Active Substance: FEBUXOSTAT
  14. AZOSEMIDE [Concomitant]
     Active Substance: AZOSEMIDE

REACTIONS (1)
  - Pulmonary hypertension [Fatal]
